FAERS Safety Report 6431701-1 (Version None)
Quarter: 2009Q4

REPORT INFORMATION
  Report Type: 
  Country: None (occurrence: None)
  Receive Date: 20091103
  Receipt Date: 20091019
  Transmission Date: 20100525
  Serious: Yes (Hospitalization)
  Sender: FDA-Public Use
  Company Number: 02100-JPN-05-0507

PATIENT
  Age: 69 Year
  Sex: Male
  Weight: 63 kg

DRUGS (12)
  1. PLETAL [Suspect]
     Indication: CEREBRAL INFARCTION
     Dosage: 100 MG, BID ORAL
     Route: 048
     Dates: start: 20050426, end: 20070308
  2. MAGNESIUM OXIDE (MAGNESIUM OXIDE) [Concomitant]
  3. PURSENNID (SENNOSIDE) [Concomitant]
  4. MOHRUS (MAGNESIUM OXIDE) [Concomitant]
  5. MAGMITT (MAGNESIUM OXIDE) [Concomitant]
  6. JULEVA N (TOCOPHEROL NICOTINATE) [Concomitant]
  7. DOGMATYL (SULPRIDE) [Concomitant]
  8. PAXIL [Concomitant]
  9. GRAMALIL (TIAPRIDE HYDROCHLORIDE) [Concomitant]
  10. ROHYPNOL (FLUNITRAZEPAM) [Concomitant]
  11. PRAVASTATIN [Concomitant]
  12. SANCOBA (CYANOCOBALAMIN) [Concomitant]

REACTIONS (9)
  - BLOOD CREATINE PHOSPHOKINASE INCREASED [None]
  - DYSKINESIA [None]
  - GASTRITIS [None]
  - INGUINAL HERNIA [None]
  - JOINT STIFFNESS [None]
  - MUSCLE DISORDER [None]
  - MUSCLE SPASMS [None]
  - URETHRITIS [None]
  - WHITE BLOOD CELL COUNT DECREASED [None]
